FAERS Safety Report 8351372-7 (Version None)
Quarter: 2012Q2

REPORT INFORMATION
  Report Type: 
  Country: None (occurrence: None)
  Receive Date: 20120510
  Receipt Date: 20120504
  Transmission Date: 20120825
  Serious: Yes (Hospitalization)
  Sender: FDA-Public Use
  Company Number: RO-ABBOTT-12P-135-0932396-00

PATIENT
  Sex: Male
  Weight: 97 kg

DRUGS (7)
  1. MOXONIDINE [Concomitant]
     Indication: HYPERTENSION
     Route: 048
  2. ISOSORBIDE DINITRATE [Concomitant]
     Indication: MYOCARDIAL ISCHAEMIA
     Route: 048
  3. ZEMPLAR [Suspect]
     Route: 048
     Dates: start: 20120501
  4. AMLODIPINE BESYLATE [Concomitant]
     Indication: HYPERTENSION
     Route: 048
  5. ZEMPLAR [Suspect]
     Indication: HYPERPARATHYROIDISM SECONDARY
     Route: 048
     Dates: start: 20111119, end: 20120501
  6. ALLOPURINOL [Concomitant]
     Indication: HYPERURICAEMIA
     Route: 048
  7. NITROGLYCERIN [Concomitant]
     Indication: MYOCARDIAL ISCHAEMIA
     Route: 048

REACTIONS (7)
  - CHEST PAIN [None]
  - DECREASED APPETITE [None]
  - ASTHENIA [None]
  - DYSPNOEA EXERTIONAL [None]
  - BLOOD CREATININE INCREASED [None]
  - NAUSEA [None]
  - RENAL FAILURE CHRONIC [None]
